FAERS Safety Report 8533975-X (Version None)
Quarter: 2012Q3

REPORT INFORMATION
  Report Type: 
  Country: None (occurrence: None)
  Receive Date: 20120724
  Receipt Date: 20120719
  Transmission Date: 20120928
  Serious: Yes (Death)
  Sender: FDA-Public Use
  Company Number: GT-ABBOTT-12P-069-0958702-00

PATIENT
  Age: 15 Month
  Sex: Male

DRUGS (1)
  1. SEVOFLURANE [Suspect]
     Indication: GENERAL ANAESTHESIA
     Route: 055
     Dates: start: 20120719, end: 20120719

REACTIONS (1)
  - BRADYCARDIA [None]
